FAERS Safety Report 16781449 (Version 2)
Quarter: 2019Q3

REPORT INFORMATION
  Report Type: Spontaneous
  Country: BE (occurrence: BE)
  Receive Date: 20190906
  Receipt Date: 20190919
  Transmission Date: 20191005
  Serious: Yes (Other)
  Sender: FDA-Public Use
  Company Number: BE-PFIZER INC-2019384406

PATIENT
  Sex: Female

DRUGS (2)
  1. VALTRAN [Suspect]
     Active Substance: NALOXONE HYDROCHLORIDE\TILIDINE HYDROCHLORIDE
     Dosage: UNK, FOR 59 TIMES (60 ML; 50 MG/4MG)
     Dates: start: 20190215
  2. ALPRAZOLAM. [Suspect]
     Active Substance: ALPRAZOLAM
     Dosage: 2 MG FOR 63 TIMES (60 PILLS) AND 1MG FOR 2 TIMES (60 PILLS)
     Dates: start: 20190215

REACTIONS (1)
  - Drug abuse [Unknown]
